FAERS Safety Report 6538806-5 (Version None)
Quarter: 2010Q1

REPORT INFORMATION
  Report Type: 
  Country: None (occurrence: None)
  Receive Date: 20100115
  Receipt Date: 20100112
  Transmission Date: 20100710
  Serious: Yes (Death, Hospitalization, Other)
  Sender: FDA-Public Use
  Company Number: US-ELI_LILLY_AND_COMPANY-US200912002803

PATIENT
  Sex: Male

DRUGS (5)
  1. GEMZAR [Suspect]
     Indication: BILE DUCT CANCER
     Dosage: UNK, OTHER; DAYS 1 AND 8 EVERY 3 WEEKS
     Dates: start: 20090810, end: 20090101
  2. CISPLATIN [Concomitant]
     Indication: BILE DUCT CANCER
     Dosage: UNK, UNK
     Dates: start: 20090810, end: 20090101
  3. FENTANYL [Concomitant]
     Indication: PAIN
     Dosage: 50 UG, UNK
     Route: 062
  4. ULTRAN [Concomitant]
     Indication: PANCREATIC ENZYMES
     Dosage: 371 MG, UNK
  5. LOPERAMIDE [Concomitant]
     Indication: DIARRHOEA

REACTIONS (7)
  - ASTHENIA [None]
  - DEHYDRATION [None]
  - DRUG TOLERANCE DECREASED [None]
  - GENERAL PHYSICAL HEALTH DETERIORATION [None]
  - MALIGNANT NEOPLASM PROGRESSION [None]
  - PAIN [None]
  - URINARY TRACT INFECTION [None]
